FAERS Safety Report 9651725 (Version 2)
Quarter: 2013Q4

REPORT INFORMATION
  Report Type: Spontaneous
  Country: JP (occurrence: JP)
  Receive Date: 20131029
  Receipt Date: 20131112
  Transmission Date: 20140711
  Serious: Yes (Death, Hospitalization, Other)
  Sender: FDA-Public Use
  Company Number: JP-ASTELLAS-2013US011198

PATIENT
  Age: 79 Year
  Sex: Female

DRUGS (8)
  1. TARCEVA [Suspect]
     Indication: ADENOSQUAMOUS CELL LUNG CANCER
     Dosage: 150 MG, UID/QD
     Route: 048
     Dates: start: 20130705, end: 20130906
  2. PURSENNIDE                         /00571902/ [Concomitant]
     Indication: CONSTIPATION
     Dosage: 2 DF, UID/QD
     Route: 065
  3. GLUCONSAN K [Concomitant]
     Indication: HYPOKALAEMIA
     Dosage: 3 DF, UID/QD
     Route: 065
  4. METHYCOBAL [Concomitant]
     Indication: NEUROPATHY PERIPHERAL
     Dosage: 3 DF, UID/QD
     Route: 048
  5. MUCOSOLVAN [Concomitant]
     Indication: BRONCHITIS
     Dosage: 3 DF, TID
     Route: 048
  6. AMOBAN [Concomitant]
     Indication: INSOMNIA
     Dosage: 1 DF, UID/QD
     Route: 048
  7. MINOMYCIN [Concomitant]
     Indication: PROPHYLAXIS
     Dosage: 2 DF, BID
     Route: 048
     Dates: start: 20130710
  8. CELESTAMINE                        /01221101/ [Concomitant]
     Indication: PROPHYLAXIS
     Dosage: 2 DF, BID
     Route: 048
     Dates: start: 20130714

REACTIONS (4)
  - Interstitial lung disease [Recovering/Resolving]
  - Pneumonia bacterial [Fatal]
  - Infection susceptibility increased [Unknown]
  - General physical health deterioration [Unknown]
